FAERS Safety Report 7046156 (Version 2)
Quarter: 2013Q4

REPORT INFORMATION
  Report Type: Spontaneous
  Country: US (occurrence: None)
  Receive Date: 20090629
  Receipt Date: 20131226
  Transmission Date: 20140711
  Serious: Yes (Other)
  Sender: FDA-Public Use
  Company Number: 2009S1004775

PATIENT
  Age: 71 Year
  Sex: Female

DRUGS (9)
  1. SODIUM PHOSPHATE [Suspect]
     Indication: COLONOSCOPY
     Dosage: PO
     Route: 048
     Dates: start: 200301, end: 200301
  2. PREMARIN (ESTROGENS CONJUGATED) (0.625 MILLIGRAM) [Concomitant]
  3. VITAMIN D (ERGOCALCIFEROL) [Concomitant]
  4. VITAMIN K (PHYTOMENADIONE) [Concomitant]
  5. VITAMIN E (TOCOPHEROL) [Concomitant]
  6. CENTRUM (ERGOCALCIFEROL,A SCORBIC ACID, PYRIDOXINE HYDROCHLORIDE, BIOTIN, FOLIC ACID, COLECALCIFEROL, CYANOCOBALIMIN,PANTOTHENIC ACID, RIBOFLAVIN,NICOTINAMIDE, RETINOL ACETATE, CALCIUM PANTOTHENATE, FERROUS FUMARATE, THIAMINE MONONITRATE, MAGNESIUM OXIDE [Concomitant]
  7. ASPIRIN [Suspect]
  8. LAMISIL (TERBENAFINE) [Concomitant]
  9. DIOVAN (VALSARTAN) [Concomitant]

REACTIONS (3)
  - Renal failure chronic [None]
  - Diarrhoea [None]
  - Colitis [None]
